FAERS Safety Report 13942048 (Version 1)
Quarter: 2017Q3

REPORT INFORMATION
  Report Type: Report from Study
  Country: ES (occurrence: ES)
  Receive Date: 20170906
  Receipt Date: 20170906
  Transmission Date: 20171127
  Serious: Yes (Other)
  Sender: FDA-Public Use
  Company Number: ES-EISAI MEDICAL RESEARCH-EC-2017-030757

PATIENT
  Age: 80 Year
  Sex: Female
  Weight: 47 kg

DRUGS (4)
  1. ERIBULIN [Suspect]
     Active Substance: ERIBULIN
     Indication: BREAST CANCER
     Route: 041
     Dates: start: 20170207, end: 20170321
  2. PQR309 [Suspect]
     Active Substance: INVESTIGATIONAL PRODUCT
     Indication: BREAST CANCER
     Dosage: INTERMITTENT, MONDAY/THURSDAY
     Route: 048
     Dates: start: 20170214, end: 20170217
  3. PQR309 [Suspect]
     Active Substance: INVESTIGATIONAL PRODUCT
     Dosage: INTERMITTENT, MONDAY/THURSDAY
     Route: 048
     Dates: start: 20170228, end: 20170324
  4. BISOPROLOL [Concomitant]
     Active Substance: BISOPROLOL

REACTIONS (1)
  - Neutropenia [Recovered/Resolved]

NARRATIVE: CASE EVENT DATE: 20170220
